FAERS Safety Report 5349621-2 (Version None)
Quarter: 2007Q2

REPORT INFORMATION
  Report Type: 
  Country: None (occurrence: None)
  Receive Date: 20070607
  Receipt Date: 20070525
  Transmission Date: 20071010
  Serious: Yes (Life-Threatening, Other)
  Sender: FDA-Public Use
  Company Number: GB-JNJFOC-20070507041

PATIENT
  Sex: Female

DRUGS (11)
  1. TRAMADOL HCL [Suspect]
     Dosage: DOSE GIVEN OVER 20 MINUTES
     Route: 042
  2. TRAMADOL HCL [Suspect]
     Indication: PAIN
     Route: 042
  3. AMLODIPINE [Concomitant]
     Route: 058
  4. CEFOTAXIME [Concomitant]
     Route: 042
  5. CHLORPHENIRAMINE MALEATE [Concomitant]
     Route: 042
  6. ENALAPRIL MALEATE [Concomitant]
     Route: 042
  7. LACTULOSE [Concomitant]
     Route: 048
  8. MOVICOL [Concomitant]
     Route: 048
  9. OMEPRAZOLE [Concomitant]
     Route: 042
  10. ONDANSETRON [Concomitant]
     Route: 042
  11. PARACETAMOL [Concomitant]
     Route: 042

REACTIONS (2)
  - APNOEA [None]
  - GRAND MAL CONVULSION [None]
